FAERS Safety Report 4475642-8 (Version None)
Quarter: 2004Q4

REPORT INFORMATION
  Report Type: 
  Country: None (occurrence: None)
  Receive Date: 20041015
  Receipt Date: 20041006
  Transmission Date: 20050328
  Serious: Yes (Hospitalization)
  Sender: FDA-Public Use
  Company Number: US-JNJFOC-20041002339

PATIENT
  Age: 51 Year
  Sex: Male

DRUGS (13)
  1. DURAGESIC [Suspect]
     Dosage: 25-100 UG/HR
     Route: 062
  2. PROGRAF [Concomitant]
  3. CELLCEPT [Concomitant]
  4. PREDNISONE [Concomitant]
  5. DAPSONE [Concomitant]
  6. LEVAQUIN [Concomitant]
  7. SENOKOT [Concomitant]
  8. MAGNESIUM OXIDE [Concomitant]
     Indication: MINERAL SUPPLEMENTATION
  9. VITAMIN B COMPLEX CAP [Concomitant]
     Indication: VITAMIN SUPPLEMENTATION
  10. FLEXERIL [Concomitant]
  11. FAMOTIDINE [Concomitant]
     Indication: PROPHYLAXIS
  12. FELODIPINE [Concomitant]
     Indication: HYPERTENSION
  13. LASIX [Concomitant]
     Indication: DIURETIC THERAPY

REACTIONS (4)
  - BLOOD BILIRUBIN INCREASED [None]
  - HEPATIC FAILURE [None]
  - JAUNDICE [None]
  - LIVER TRANSPLANT [None]
